FAERS Safety Report 8370156-7 (Version None)
Quarter: 2012Q1

REPORT INFORMATION
  Report Type: 
  Country: None (occurrence: None)
  Receive Date: 20120323
  Receipt Date: 20110809
  Transmission Date: 20120608
  Serious: Yes (Other)
  Sender: FDA-Public Use
  Company Number: 163-21880-11081269

PATIENT
  Age: 81 Year
  Sex: Female
  Weight: 63.5036 kg

DRUGS (12)
  1. HYDROCODONE/APAP (PROCET /USA/) [Concomitant]
  2. MULTIVITAMIN [Concomitant]
  3. VITAMIN B12 [Concomitant]
  4. CALCIUM CARBONATE [Concomitant]
  5. WARFARIN SODIUM [Concomitant]
  6. DEXAMETHASONE [Concomitant]
  7. OMEPRAZOLE [Concomitant]
  8. REVLIMID [Suspect]
     Indication: MULTIPLE MYELOMA
     Dosage: 25 MG, 1 IN 1 D, PO 15 MG, QD X 21 DAYS, PO 15 MG, X 21 DAYS, PO
     Route: 048
     Dates: start: 20091201
  9. REVLIMID [Suspect]
     Indication: MULTIPLE MYELOMA
     Dosage: 25 MG, 1 IN 1 D, PO 15 MG, QD X 21 DAYS, PO 15 MG, X 21 DAYS, PO
     Route: 048
     Dates: start: 20091013
  10. REVLIMID [Suspect]
     Indication: MULTIPLE MYELOMA
     Dosage: 25 MG, 1 IN 1 D, PO 15 MG, QD X 21 DAYS, PO 15 MG, X 21 DAYS, PO
     Route: 048
     Dates: start: 20110601
  11. METOPROLOL TARTRATE [Concomitant]
  12. ZOMETA [Concomitant]

REACTIONS (2)
  - THROMBOSIS [None]
  - CONTUSION [None]
